FAERS Safety Report 4999950-7 (Version None)
Quarter: 2006Q2

REPORT INFORMATION
  Report Type: 
  Country: None (occurrence: None)
  Receive Date: 20060511
  Receipt Date: 20060502
  Transmission Date: 20061013
  Serious: Yes (Hospitalization, Other)
  Sender: FDA-Public Use
  Company Number: BR-JNJFOC-20060501194

PATIENT
  Age: 43 Year
  Sex: Female
  Weight: 88 kg

DRUGS (3)
  1. ACETAMINOPHEN W/ CODEINE [Suspect]
     Indication: PAIN
     Route: 048
  2. MIOSAN [Concomitant]
     Route: 048
  3. PRIMIDONE [Concomitant]
     Route: 048

REACTIONS (6)
  - CONVULSION [None]
  - FIBROMYALGIA [None]
  - PAIN [None]
  - SICKLE CELL ANAEMIA [None]
  - TREMOR [None]
  - WEIGHT INCREASED [None]
